FAERS Safety Report 12630544 (Version 1)
Quarter: 2016Q3

REPORT INFORMATION
  Report Type: Spontaneous
  Country: GB (occurrence: GB)
  Receive Date: 20160808
  Receipt Date: 20160808
  Transmission Date: 20161109
  Serious: Yes (Hospitalization)
  Sender: FDA-Public Use
  Company Number: GB-JNJFOC-20160802495

PATIENT
  Age: 72 Year
  Sex: Male

DRUGS (1)
  1. XARELTO [Suspect]
     Active Substance: RIVAROXABAN
     Indication: PRODUCT USED FOR UNKNOWN INDICATION
     Route: 048

REACTIONS (4)
  - Muscular weakness [Unknown]
  - Basal ganglia haemorrhage [Recovered/Resolved]
  - Dysarthria [Unknown]
  - Intraventricular haemorrhage [Recovered/Resolved]

NARRATIVE: CASE EVENT DATE: 201602
